FAERS Safety Report 8968170 (Version 1)
Quarter: 2012Q4

REPORT INFORMATION
  Report Type: Spontaneous
  Country: US (occurrence: None)
  Receive Date: 20121214
  Receipt Date: 20121214
  Transmission Date: 20130627
  Serious: Yes (Disabling)
  Sender: FDA-Public Use
  Company Number: None

PATIENT
  Age: 21 Year
  Sex: Female
  Weight: 49.9 kg

DRUGS (1)
  1. MIRENA UNK [Suspect]
     Dates: start: 20111201, end: 20121210

REACTIONS (4)
  - Fallopian tube disorder [None]
  - Muscle spasms [None]
  - Haemorrhage [None]
  - Thrombosis [None]
